FAERS Safety Report 12681733 (Version 2)
Quarter: 2016Q4

REPORT INFORMATION
  Report Type: Spontaneous
  Country: CN (occurrence: CN)
  Receive Date: 20160824
  Receipt Date: 20161130
  Transmission Date: 20170207
  Serious: Yes (Other)
  Sender: FDA-Public Use
  Company Number: CN-BAYER-2016-160020

PATIENT
  Weight: 17.5 kg

DRUGS (1)
  1. KOGENATE FS [Suspect]
     Active Substance: ANTIHEMOPHILIC FACTOR, HUMAN RECOMBINANT
     Dosage: 4-5 PIECES WERE INJECTED ONCE BEFORE. 2 PIECES WERE INJECTED THIS TIME FOR 3 TIMES

REACTIONS (5)
  - Haemarthrosis [Recovered/Resolved]
  - Skin warm [Recovered/Resolved]
  - Product measured potency issue [None]
  - Drug ineffective [None]
  - Out of specification test results [None]
